FAERS Safety Report 12714005 (Version 2)
Quarter: 2016Q3

REPORT INFORMATION
  Report Type: Spontaneous
  Country: JP (occurrence: JP)
  Receive Date: 20160905
  Receipt Date: 20160916
  Transmission Date: 20161109
  Serious: Yes (Death, Other)
  Sender: FDA-Public Use
  Company Number: JP-BAUSCH-BL-2016-020977

PATIENT
  Age: 39 Year
  Sex: Male

DRUGS (12)
  1. FLUOROURACIL. [Suspect]
     Active Substance: FLUOROURACIL
     Indication: METASTASES TO LUNG
     Route: 065
     Dates: start: 201410
  2. PACLITAXEL. [Suspect]
     Active Substance: PACLITAXEL
     Indication: BLADDER CANCER
     Dosage: EVERY CYCLE
     Route: 065
     Dates: start: 201407
  3. OXALIPLATIN. [Suspect]
     Active Substance: OXALIPLATIN
     Indication: BLADDER CANCER
     Dosage: EVERY CYCLE , FEW MONTHS
     Route: 065
     Dates: start: 201407, end: 201410
  4. FLUOROURACIL. [Suspect]
     Active Substance: FLUOROURACIL
     Indication: BLADDER CANCER
     Route: 065
     Dates: start: 201407, end: 201410
  5. IRINOTECAN [Suspect]
     Active Substance: IRINOTECAN
     Indication: METASTASES TO LUNG
     Route: 065
     Dates: start: 201410
  6. TS-1 [Suspect]
     Active Substance: GIMERACIL\OTERACIL\TEGAFUR
     Indication: METASTASES TO LUNG
     Route: 065
     Dates: start: 201310
  7. FOLINIC ACID [Suspect]
     Active Substance: LEUCOVORIN
     Indication: BLADDER CANCER
     Route: 065
     Dates: start: 201407, end: 201410
  8. TS-1 [Suspect]
     Active Substance: GIMERACIL\OTERACIL\TEGAFUR
     Indication: BLADDER CANCER
     Route: 065
     Dates: start: 2012, end: 2012
  9. CISPLATIN. [Suspect]
     Active Substance: CISPLATIN
     Indication: BLADDER CANCER
     Route: 065
     Dates: start: 201310
  10. CISPLATIN. [Suspect]
     Active Substance: CISPLATIN
     Indication: METASTASES TO LUNG
  11. OXALIPLATIN. [Suspect]
     Active Substance: OXALIPLATIN
     Indication: METASTASES TO LUNG
  12. FOLINIC ACID [Suspect]
     Active Substance: LEUCOVORIN
     Indication: METASTASES TO LUNG
     Dosage: EVERY CYCLE , FEW MONTH
     Route: 065
     Dates: start: 201410

REACTIONS (1)
  - Malignant neoplasm progression [Fatal]

NARRATIVE: CASE EVENT DATE: 201210
